FAERS Safety Report 4946507-X (Version None)
Quarter: 2006Q1

REPORT INFORMATION
  Report Type: 
  Country: None (occurrence: None)
  Receive Date: 20060313
  Receipt Date: 20060303
  Transmission Date: 20060701
  Serious: Yes (Death)
  Sender: FDA-Public Use
  Company Number: 060306-0000188

PATIENT
  Age: 33 Year

DRUGS (3)
  1. METHAMPHETAMINE HCL (METHAMPHETAMINE HYDROCHLORIDE) [Suspect]
     Dosage: PO
     Route: 048
  2. ACETAMINOPHEN [Suspect]
     Dosage: PO
     Route: 048
  3. PROPOXYPHENE HCL [Suspect]
     Dosage: PO
     Route: 048

REACTIONS (1)
  - COMPLETED SUICIDE [None]
